FAERS Safety Report 8832098 (Version 2)
Quarter: 2013Q2

REPORT INFORMATION
  Report Type: Spontaneous
  Country: US (occurrence: US)
  Receive Date: 20121009
  Receipt Date: 20130508
  Transmission Date: 20140414
  Serious: Yes (Other)
  Sender: FDA-Public Use
  Company Number: US-ROCHE-1142071

PATIENT
  Age: 69 Year
  Sex: Male
  Weight: 90.8 kg

DRUGS (4)
  1. ERIVEDGE [Suspect]
     Indication: BASAL CELL CARCINOMA
     Route: 048
     Dates: start: 20120816, end: 20120920
  2. ZESTRIL [Concomitant]
     Route: 048
  3. LASIX [Concomitant]
     Route: 048
  4. LOPRESSOR [Concomitant]
     Route: 048

REACTIONS (1)
  - Hepatic enzyme increased [Recovered/Resolved]
